FAERS Safety Report 8436082-X (Version None)
Quarter: 2012Q2

REPORT INFORMATION
  Report Type: 
  Country: None (occurrence: None)
  Receive Date: 20120614
  Receipt Date: 20120607
  Transmission Date: 20120825
  Serious: Yes (Hospitalization)
  Sender: FDA-Public Use
  Company Number: BR-ROCHE-1076927

PATIENT
  Sex: Male
  Weight: 71.6 kg

DRUGS (3)
  1. EVEROLIMUS [Suspect]
     Indication: METASTATIC RENAL CELL CARCINOMA
     Route: 048
     Dates: start: 20091001, end: 20100529
  2. AVASTIN [Suspect]
     Indication: METASTATIC RENAL CELL CARCINOMA
     Dates: start: 20091001
  3. EVEROLIMUS [Suspect]
     Route: 048
     Dates: end: 20110329

REACTIONS (3)
  - PNEUMONIA [None]
  - HEPATOTOXICITY [None]
  - JAUNDICE [None]
